FAERS Safety Report 5274935-4 (Version None)
Quarter: 2007Q1

REPORT INFORMATION
  Report Type: 
  Country: None (occurrence: None)
  Receive Date: 20061208
  Receipt Date: 20051111
  Transmission Date: 20070707
  Serious: No
  Sender: FDA-Public Use
  Company Number: 2004UW18780

PATIENT
  Sex: Female

DRUGS (1)
  1. CRESTOR [Suspect]
     Indication: BLOOD CHOLESTEROL INCREASED

REACTIONS (6)
  - BONE LESION [None]
  - BONE MARROW FAILURE [None]
  - MULTIPLE MYELOMA [None]
  - RENAL FAILURE [None]
  - RIB FRACTURE [None]
  - SPINAL DISORDER [None]
